FAERS Safety Report 12654495 (Version 60)
Quarter: 2024Q1

REPORT INFORMATION
  Report Type: Report from Study
  Country: CO (occurrence: CO)
  Receive Date: 20160816
  Receipt Date: 20240129
  Transmission Date: 20240409
  Serious: Yes (Life-Threatening, Hospitalization, Disabling, Other)
  Sender: FDA-Public Use
  Company Number: PHHY2016CO111394

PATIENT
  Age: 48 Year
  Sex: Female
  Weight: 74 kg

DRUGS (24)
  1. ELTROMBOPAG OLAMINE [Suspect]
     Active Substance: ELTROMBOPAG OLAMINE
     Indication: Immune thrombocytopenia
     Dosage: 25 MG, TID
     Route: 048
     Dates: start: 20160615
  2. ELTROMBOPAG OLAMINE [Suspect]
     Active Substance: ELTROMBOPAG OLAMINE
     Dosage: 75 MG, QD
     Route: 048
     Dates: start: 20160715
  3. ELTROMBOPAG OLAMINE [Suspect]
     Active Substance: ELTROMBOPAG OLAMINE
     Dosage: 75 MG, QD
     Route: 048
     Dates: start: 20160717, end: 20180726
  4. ELTROMBOPAG OLAMINE [Suspect]
     Active Substance: ELTROMBOPAG OLAMINE
     Dosage: 100 MG, QD (2 X 50 MG)
     Route: 048
     Dates: start: 20160815, end: 20161220
  5. ELTROMBOPAG OLAMINE [Suspect]
     Active Substance: ELTROMBOPAG OLAMINE
     Dosage: 1 DOSAGE FORM, BID
     Route: 048
     Dates: start: 20170130
  6. ELTROMBOPAG OLAMINE [Suspect]
     Active Substance: ELTROMBOPAG OLAMINE
     Dosage: 25 MG, TID
     Route: 048
     Dates: start: 20170412
  7. ELTROMBOPAG OLAMINE [Suspect]
     Active Substance: ELTROMBOPAG OLAMINE
     Dosage: 2 DOSAGE FORM, QD (2 TABLETS OF 25MG DAILY FOR 15 DAYS)
     Route: 048
  8. ELTROMBOPAG OLAMINE [Suspect]
     Active Substance: ELTROMBOPAG OLAMINE
     Dosage: 75 MG, QD
     Route: 048
  9. ELTROMBOPAG OLAMINE [Suspect]
     Active Substance: ELTROMBOPAG OLAMINE
     Dosage: 75 MG, QD (STARTED 4 MONTHS AGO, STOPPED 2 MONTHS AGO)
     Route: 048
  10. ELTROMBOPAG OLAMINE [Suspect]
     Active Substance: ELTROMBOPAG OLAMINE
     Dosage: 25 MG, TID
     Route: 048
  11. ELTROMBOPAG OLAMINE [Suspect]
     Active Substance: ELTROMBOPAG OLAMINE
     Dosage: 25 MG, Q12H
     Route: 048
  12. ELTROMBOPAG OLAMINE [Suspect]
     Active Substance: ELTROMBOPAG OLAMINE
     Dosage: 75 MG, QD
     Route: 048
  13. ELTROMBOPAG OLAMINE [Suspect]
     Active Substance: ELTROMBOPAG OLAMINE
     Dosage: 100 MG, QD (DAILY)
     Route: 048
  14. ELTROMBOPAG OLAMINE [Suspect]
     Active Substance: ELTROMBOPAG OLAMINE
     Dosage: UNK, QD
     Route: 048
  15. ELTROMBOPAG OLAMINE [Suspect]
     Active Substance: ELTROMBOPAG OLAMINE
     Dosage: UNK
     Route: 048
  16. ELTROMBOPAG OLAMINE [Suspect]
     Active Substance: ELTROMBOPAG OLAMINE
     Dosage: 50
     Route: 065
  17. PREDNISOLONE [Suspect]
     Active Substance: PREDNISOLONE
     Indication: Immune thrombocytopenia
     Dosage: 50 MG, QD
     Route: 048
  18. PREDNISOLONE [Suspect]
     Active Substance: PREDNISOLONE
     Indication: Platelet count increased
     Dosage: 50 MG
     Route: 048
  19. PREDNISOLONE [Suspect]
     Active Substance: PREDNISOLONE
     Indication: Pain
     Dosage: 6 DOSAGE FORM, QD (5 MG)
     Route: 065
  20. PREDNISOLONE [Suspect]
     Active Substance: PREDNISOLONE
     Indication: Inflammation
     Dosage: UNK
     Route: 042
  21. METHOTREXATE [Suspect]
     Active Substance: METHOTREXATE
     Indication: Arthritis
     Dosage: UNK (METROSALZATO, PRE-FILLED AMPOULE)
     Route: 065
  22. CALCIUM [Concomitant]
     Active Substance: CALCIUM
     Indication: Product used for unknown indication
     Dosage: UNK
     Route: 065
  23. MIGRANOL [Concomitant]
     Indication: Product used for unknown indication
     Dosage: UNK
     Route: 065
  24. THIAMINE [Concomitant]
     Active Substance: THIAMINE
     Indication: Immune thrombocytopenia
     Dosage: 25 MG, QD
     Route: 048

REACTIONS (89)
  - Platelet count decreased [Unknown]
  - Gait disturbance [Unknown]
  - Breast discharge [Not Recovered/Not Resolved]
  - Syncope [Unknown]
  - Swelling face [Unknown]
  - Joint swelling [Unknown]
  - Gingival pain [Unknown]
  - Migraine [Unknown]
  - Pain [Unknown]
  - Spinal pain [Unknown]
  - Depressed mood [Not Recovered/Not Resolved]
  - Bronchitis [Unknown]
  - Pneumonia [Unknown]
  - Contusion [Unknown]
  - Influenza [Unknown]
  - Headache [Unknown]
  - Peripheral swelling [Unknown]
  - Pain in extremity [Unknown]
  - Joint effusion [Unknown]
  - Poor peripheral circulation [Unknown]
  - Insomnia [Unknown]
  - Abdominal pain upper [Unknown]
  - Arthralgia [Not Recovered/Not Resolved]
  - Breast disorder female [Unknown]
  - Aphonia [Unknown]
  - Throat cancer [Unknown]
  - Intervertebral disc protrusion [Unknown]
  - Haematological infection [Unknown]
  - Vaginal haemorrhage [Recovered/Resolved]
  - Blister [Unknown]
  - Haemorrhage [Unknown]
  - Post procedural haemorrhage [Unknown]
  - Haemoglobin decreased [Unknown]
  - Hepatitis [Unknown]
  - Cataract [Unknown]
  - Corneal leukoma [Unknown]
  - Swelling [Unknown]
  - Drug effect less than expected [Unknown]
  - Disease recurrence [Unknown]
  - Effusion [Unknown]
  - Breast haematoma [Unknown]
  - Malaise [Not Recovered/Not Resolved]
  - Breast pain [Unknown]
  - Somnolence [Unknown]
  - Haematoma [Unknown]
  - Immune system disorder [Unknown]
  - Feeling of despair [Unknown]
  - Balance disorder [Unknown]
  - Inflammation [Recovered/Resolved]
  - Osteoarthritis [Unknown]
  - Hypoaesthesia [Not Recovered/Not Resolved]
  - Limb discomfort [Unknown]
  - Skin discolouration [Unknown]
  - Hyperhidrosis [Unknown]
  - Condition aggravated [Unknown]
  - Dehydration [Unknown]
  - Paraesthesia [Unknown]
  - Vulvovaginal pruritus [Unknown]
  - Vulvovaginal burning sensation [Unknown]
  - Joint stiffness [Unknown]
  - Epistaxis [Unknown]
  - Neck pain [Unknown]
  - Muscular weakness [Unknown]
  - Oropharyngeal pain [Unknown]
  - Thyroid mass [Unknown]
  - Head discomfort [Unknown]
  - Inflammation [Unknown]
  - Decreased immune responsiveness [Unknown]
  - Cardiovascular disorder [Unknown]
  - Nerve degeneration [Unknown]
  - Nodule [Unknown]
  - Fatigue [Unknown]
  - Pruritus [Unknown]
  - Alopecia [Unknown]
  - Asthenia [Unknown]
  - Bone pain [Unknown]
  - Diarrhoea [Unknown]
  - Vomiting [Unknown]
  - Platelet count abnormal [Unknown]
  - Eye disorder [Unknown]
  - Visual impairment [Unknown]
  - Dysphonia [Not Recovered/Not Resolved]
  - Fibromyalgia [Unknown]
  - Vulvovaginal pain [Unknown]
  - Incorrect dose administered [Unknown]
  - Incorrect route of product administration [Unknown]
  - Product dose omission issue [Unknown]
  - Arthritis [Unknown]
  - Prescribed overdose [Unknown]

NARRATIVE: CASE EVENT DATE: 20170519
